FAERS Safety Report 22673753 (Version 2)
Quarter: 2023Q4

REPORT INFORMATION
  Report Type: Spontaneous
  Country: CN (occurrence: CN)
  Receive Date: 20230705
  Receipt Date: 20231006
  Transmission Date: 20240109
  Serious: Yes (Life-Threatening, Hospitalization, Other)
  Sender: FDA-Public Use
  Company Number: CN-BAYER-2023A091977

PATIENT
  Age: 67 Year
  Sex: Male
  Weight: 62 kg

DRUGS (3)
  1. ULTRAVIST [Suspect]
     Active Substance: IOPROMIDE
     Indication: Angiogram
     Dosage: 55 ML, ONCE, PUMP INJECTION
     Route: 050
     Dates: start: 20230629, end: 20230629
  2. ULTRAVIST [Suspect]
     Active Substance: IOPROMIDE
     Indication: Angiogram
  3. ULTRAVIST [Suspect]
     Active Substance: IOPROMIDE
     Indication: Dizziness

REACTIONS (6)
  - Anaphylactic shock [Recovering/Resolving]
  - Loss of consciousness [Recovered/Resolved]
  - Blood pressure decreased [Recovering/Resolving]
  - Hyperhidrosis [Recovering/Resolving]
  - Pruritus [Recovering/Resolving]
  - Dilated pores [Recovering/Resolving]

NARRATIVE: CASE EVENT DATE: 20230629
